FAERS Safety Report 19507915 (Version 1)
Quarter: 2021Q3

REPORT INFORMATION
  Report Type: Spontaneous
  Country: US (occurrence: US)
  Receive Date: 20210708
  Receipt Date: 20210708
  Transmission Date: 20211014
  Serious: Yes (Other)
  Sender: FDA-Public Use
  Company Number: US-PFIZER INC-2021815216

PATIENT
  Age: 45 Year
  Sex: Female

DRUGS (1)
  1. IBRANCE [Suspect]
     Active Substance: PALBOCICLIB
     Indication: BREAST CANCER
     Dosage: 125 MG, CYCLIC, 21 DAYS ON/ 7 OFF
     Route: 048
     Dates: start: 20210603

REACTIONS (3)
  - Palpitations [Unknown]
  - Dyspnoea [Unknown]
  - Hepatomegaly [Unknown]
